FAERS Safety Report 8516124 (Version 2)
Quarter: 2014Q2

REPORT INFORMATION
  Report Type: Spontaneous
  Country: US (occurrence: US)
  Receive Date: 20120417
  Receipt Date: 20140426
  Transmission Date: 20141212
  Serious: No
  Sender: FDA-Public Use
  Company Number: US-ASTRAZENECA-2011SE23527

PATIENT
  Age: 66 Year
  Sex: Female
  Weight: 67.1 kg

DRUGS (20)
  1. NEXIUM [Suspect]
     Indication: HIATUS HERNIA
     Dosage: TWICE OR THREE TIMES A DAY
     Route: 048
  2. NEXIUM [Suspect]
     Indication: GASTROOESOPHAGEAL REFLUX DISEASE
     Dosage: TWICE OR THREE TIMES A DAY
     Route: 048
  3. NEXIUM [Suspect]
     Indication: HIATUS HERNIA
     Route: 048
     Dates: start: 2001, end: 201401
  4. NEXIUM [Suspect]
     Indication: GASTROOESOPHAGEAL REFLUX DISEASE
     Route: 048
     Dates: start: 2001, end: 201401
  5. NEXIUM [Suspect]
     Indication: HIATUS HERNIA
     Route: 048
     Dates: start: 2008, end: 201401
  6. NEXIUM [Suspect]
     Indication: GASTROOESOPHAGEAL REFLUX DISEASE
     Route: 048
     Dates: start: 2008, end: 201401
  7. NEXIUM [Suspect]
     Indication: HIATUS HERNIA
     Dosage: TWICE OR THREE TIMES A DAY
     Route: 048
     Dates: start: 2008, end: 201401
  8. NEXIUM [Suspect]
     Indication: GASTROOESOPHAGEAL REFLUX DISEASE
     Dosage: TWICE OR THREE TIMES A DAY
     Route: 048
     Dates: start: 2008, end: 201401
  9. PRILOSEC OTC [Suspect]
     Route: 048
  10. PRILOSEC [Suspect]
     Indication: HIATUS HERNIA
     Route: 048
     Dates: start: 1989, end: 2008
  11. PRILOSEC [Suspect]
     Indication: GASTROOESOPHAGEAL REFLUX DISEASE
     Route: 048
     Dates: start: 1989, end: 2008
  12. PRILOSEC [Suspect]
     Indication: GASTRIC ULCER
     Route: 048
     Dates: start: 1989, end: 2008
  13. PRILOSEC [Suspect]
     Indication: HIATUS HERNIA
     Route: 048
     Dates: start: 1995, end: 1997
  14. PRILOSEC [Suspect]
     Indication: GASTROOESOPHAGEAL REFLUX DISEASE
     Route: 048
     Dates: start: 1995, end: 1997
  15. PRILOSEC [Suspect]
     Indication: GASTRIC ULCER
     Route: 048
     Dates: start: 1995, end: 1997
  16. PRILOSEC [Suspect]
     Indication: HIATUS HERNIA
     Route: 048
     Dates: start: 1997, end: 2001
  17. PRILOSEC [Suspect]
     Indication: GASTROOESOPHAGEAL REFLUX DISEASE
     Route: 048
     Dates: start: 1997, end: 2001
  18. PRILOSEC [Suspect]
     Indication: GASTRIC ULCER
     Route: 048
     Dates: start: 1997, end: 2001
  19. DEXILANT [Concomitant]
  20. ZEGRID [Concomitant]

REACTIONS (24)
  - Abdominal distension [Unknown]
  - Gastrooesophageal reflux disease [Unknown]
  - Choking [Unknown]
  - Gastric disorder [Unknown]
  - Gastrooesophageal reflux disease [Not Recovered/Not Resolved]
  - Chest discomfort [Recovered/Resolved]
  - Dyspepsia [Not Recovered/Not Resolved]
  - Syncope [Unknown]
  - Heart rate abnormal [Unknown]
  - Hiatus hernia [Unknown]
  - Hypophagia [Unknown]
  - Adverse event [Unknown]
  - Stress [Unknown]
  - Oesophageal disorder [Unknown]
  - Weight increased [Unknown]
  - Dyspepsia [Unknown]
  - Nervousness [Unknown]
  - Vomiting [Unknown]
  - Abdominal pain upper [Not Recovered/Not Resolved]
  - Dysgeusia [Unknown]
  - Drug ineffective [Unknown]
  - Incorrect dose administered [Unknown]
  - Drug dose omission [Not Recovered/Not Resolved]
  - Intentional product misuse [Not Recovered/Not Resolved]
